FAERS Safety Report 24925830 (Version 5)
Quarter: 2025Q2

REPORT INFORMATION
  Report Type: Other
  Country: LT (occurrence: LT)
  Receive Date: 20250205
  Receipt Date: 20250612
  Transmission Date: 20250717
  Serious: Yes (Hospitalization, Other)
  Sender: Steriscience PTE
  Company Number: LT-SUN PHARMACEUTICAL INDUSTRIES LTD-2025RR-490069

PATIENT
  Age: 29 Year
  Sex: Female

DRUGS (41)
  1. VANCOMYCIN [Suspect]
     Active Substance: VANCOMYCIN
     Indication: Antibiotic therapy
     Route: 065
     Dates: start: 20201219
  2. MEROPENEM [Suspect]
     Active Substance: MEROPENEM
     Indication: Antibiotic therapy
     Route: 065
     Dates: start: 20201219
  3. MEROPENEM [Suspect]
     Active Substance: MEROPENEM
     Route: 065
     Dates: start: 20201219
  4. METOPROLOL [Suspect]
     Active Substance: METOPROLOL
     Indication: Hypertension
     Route: 065
  5. METOPROLOL [Suspect]
     Active Substance: METOPROLOL
     Route: 065
     Dates: start: 202012
  6. METOPROLOL [Suspect]
     Active Substance: METOPROLOL
     Route: 065
  7. AMOXICILLIN\CLAVULANIC ACID [Suspect]
     Active Substance: AMOXICILLIN\CLAVULANIC ACID
     Indication: Antibiotic therapy
     Route: 065
  8. OMEPRAZOLE [Suspect]
     Active Substance: OMEPRAZOLE
     Indication: Prophylaxis
     Route: 065
  9. OMEPRAZOLE [Suspect]
     Active Substance: OMEPRAZOLE
     Indication: Gastric ulcer
     Route: 065
     Dates: start: 202012
  10. OMEPRAZOLE [Suspect]
     Active Substance: OMEPRAZOLE
     Indication: Prophylaxis against gastrointestinal ulcer
     Route: 065
  11. NOREPINEPHRINE BITARTRATE [Suspect]
     Active Substance: NOREPINEPHRINE BITARTRATE
     Indication: Haemodynamic instability
     Route: 065
  12. NOREPINEPHRINE BITARTRATE [Suspect]
     Active Substance: NOREPINEPHRINE BITARTRATE
     Indication: Drug therapy
     Route: 065
     Dates: start: 20201219
  13. NOREPINEPHRINE BITARTRATE [Suspect]
     Active Substance: NOREPINEPHRINE BITARTRATE
     Route: 065
     Dates: start: 20201227
  14. DEXMEDETOMIDINE [Suspect]
     Active Substance: DEXMEDETOMIDINE
     Indication: Sedation
     Route: 065
  15. DEXMEDETOMIDINE [Suspect]
     Active Substance: DEXMEDETOMIDINE
     Route: 065
     Dates: start: 202012
  16. IBUPROFEN [Suspect]
     Active Substance: IBUPROFEN
     Indication: Pain
     Route: 065
  17. DICLOFENAC [Suspect]
     Active Substance: DICLOFENAC
     Indication: Pain
     Route: 065
  18. MORPHINE [Suspect]
     Active Substance: MORPHINE
     Indication: Sedation
     Route: 065
  19. MORPHINE [Suspect]
     Active Substance: MORPHINE
     Route: 065
     Dates: start: 202012
  20. DIPRIVAN [Suspect]
     Active Substance: PROPOFOL
     Indication: Sedation
     Route: 065
  21. DIPRIVAN [Suspect]
     Active Substance: PROPOFOL
     Route: 065
  22. DIPRIVAN [Suspect]
     Active Substance: PROPOFOL
     Route: 065
     Dates: start: 202012
  23. DIPRIVAN [Suspect]
     Active Substance: PROPOFOL
     Route: 065
  24. DECADRON (DEXAMETHASONE SODIUM PHOSPHATE) [Suspect]
     Active Substance: DEXAMETHASONE SODIUM PHOSPHATE
     Indication: Product used for unknown indication
     Route: 065
     Dates: start: 20201219
  25. DECADRON (DEXAMETHASONE SODIUM PHOSPHATE) [Suspect]
     Active Substance: DEXAMETHASONE SODIUM PHOSPHATE
     Indication: Product used for unknown indication
     Route: 065
     Dates: start: 20201219
  26. DECADRON (DEXAMETHASONE SODIUM PHOSPHATE) [Suspect]
     Active Substance: DEXAMETHASONE SODIUM PHOSPHATE
     Route: 065
     Dates: start: 20201219
  27. DECADRON (DEXAMETHASONE SODIUM PHOSPHATE) [Suspect]
     Active Substance: DEXAMETHASONE SODIUM PHOSPHATE
     Route: 065
     Dates: start: 20201219
  28. LORAZEPAM [Suspect]
     Active Substance: LORAZEPAM
     Indication: Anxiety
     Route: 065
  29. LORAZEPAM [Suspect]
     Active Substance: LORAZEPAM
     Indication: Insomnia
  30. BROMOCRIPTINE [Suspect]
     Active Substance: BROMOCRIPTINE
     Indication: Lactation inhibition therapy
     Route: 065
  31. BROMOCRIPTINE [Suspect]
     Active Substance: BROMOCRIPTINE
     Route: 065
     Dates: start: 20201221
  32. FLUCONAZOLE [Suspect]
     Active Substance: FLUCONAZOLE
     Indication: Product used for unknown indication
     Route: 065
  33. FLUCONAZOLE [Suspect]
     Active Substance: FLUCONAZOLE
     Indication: Product used for unknown indication
     Route: 065
     Dates: start: 20201226
  34. DEXAMETHASONE [Suspect]
     Active Substance: DEXAMETHASONE
     Indication: Product used for unknown indication
     Route: 065
     Dates: start: 20201219
  35. DEXAMETHASONE [Suspect]
     Active Substance: DEXAMETHASONE
     Route: 065
  36. PROPOFOL [Suspect]
     Active Substance: PROPOFOL
     Indication: Sedation
     Route: 065
  37. PROPOFOL [Suspect]
     Active Substance: PROPOFOL
     Route: 065
     Dates: start: 202012
  38. PROPOFOL [Suspect]
     Active Substance: PROPOFOL
     Route: 065
  39. PROPOFOL [Suspect]
     Active Substance: PROPOFOL
     Route: 065
  40. NOREPINEPHRINE [Suspect]
     Active Substance: NOREPINEPHRINE
     Indication: Drug therapy
     Route: 065
     Dates: start: 20201219
  41. DEXAMETHASONE [Suspect]
     Active Substance: DEXAMETHASONE
     Indication: Product used for unknown indication
     Route: 065

REACTIONS (2)
  - Foetal death [Unknown]
  - Exposure during pregnancy [Unknown]

NARRATIVE: CASE EVENT DATE: 20201219
